FAERS Safety Report 17614431 (Version 1)
Quarter: 2020Q2

REPORT INFORMATION
  Report Type: Spontaneous
  Country: DE (occurrence: DE)
  Receive Date: 20200402
  Receipt Date: 20200402
  Transmission Date: 20200713
  Serious: Yes (Hospitalization)
  Sender: FDA-Public Use
  Company Number: DE-ALKEM LABORATORIES LIMITED-DE-ALKEM-2019-01906

PATIENT

DRUGS (6)
  1. RISPERIDONE. [Suspect]
     Active Substance: RISPERIDONE
     Indication: WRONG DRUG
     Dosage: 3 MG, OD
     Route: 048
     Dates: start: 20180715, end: 20180715
  2. CIATYL 20 MG/ML TROPFEN [Concomitant]
     Indication: PRODUCT USED FOR UNKNOWN INDICATION
     Dosage: 24 DROP, OD
     Route: 048
  3. BELLADONNA TINCTURE [Concomitant]
     Active Substance: BELLADONNA LEAF\HOMEOPATHICS
     Indication: PRODUCT USED FOR UNKNOWN INDICATION
     Dosage: 27 DROP, OD
     Route: 048
  4. QUETIAPINE FUMARATE. [Suspect]
     Active Substance: QUETIAPINE FUMARATE
     Indication: PRODUCT USED FOR UNKNOWN INDICATION
     Dosage: 200 MG
     Route: 048
     Dates: start: 20180715, end: 20180715
  5. ARIPIPRAZOLE. [Suspect]
     Active Substance: ARIPIPRAZOLE
     Indication: WRONG DRUG
     Dosage: 5 MG, UNK
     Route: 048
     Dates: start: 20180715, end: 20180715
  6. PIPAMPERONE [Concomitant]
     Active Substance: PIPAMPERONE
     Indication: PRODUCT USED FOR UNKNOWN INDICATION
     Dosage: 120 MG, OD
     Route: 048

REACTIONS (4)
  - Product dose omission [Unknown]
  - Seizure [Recovered/Resolved]
  - Product administration error [Unknown]
  - Wrong product administered [Unknown]

NARRATIVE: CASE EVENT DATE: 20180715
